FAERS Safety Report 21948511 (Version 1)
Quarter: 2023Q1

REPORT INFORMATION
  Report Type: Spontaneous
  Country: DE (occurrence: DE)
  Receive Date: 20230203
  Receipt Date: 20230203
  Transmission Date: 20230418
  Serious: Yes (Other)
  Sender: FDA-Public Use
  Company Number: DE-ROCHE-3266040

PATIENT
  Sex: Male

DRUGS (11)
  1. BENDAMUSTINE HYDROCHLORIDE [Suspect]
     Active Substance: BENDAMUSTINE HYDROCHLORIDE
     Indication: Diffuse large B-cell lymphoma
     Dosage: (THIRD LINE WITH RITUXIMAB AND POLATUZUMAB)
     Route: 042
     Dates: start: 20220912, end: 20221011
  2. GEMCITABINE [Suspect]
     Active Substance: GEMCITABINE
     Indication: Diffuse large B-cell lymphoma
     Dosage: (SECOND LINE WITH RITUXIMAB)GEMOX
     Route: 065
     Dates: start: 20220714, end: 20220908
  3. OXALIPLATIN [Suspect]
     Active Substance: OXALIPLATIN
     Indication: Diffuse large B-cell lymphoma
     Dosage: (SECOND LINE WITH RITUXIMAB)GEMOX
     Route: 065
     Dates: start: 20220714, end: 20220908
  4. DOXORUBICIN HYDROCHLORIDE [Suspect]
     Active Substance: DOXORUBICIN HYDROCHLORIDE
     Indication: Diffuse large B-cell lymphoma
     Dosage: .(FIRST LINE WITH RITUXIMAB)CHOP
     Route: 065
     Dates: start: 20211201, end: 20220331
  5. VINCRISTINE SULFATE [Suspect]
     Active Substance: VINCRISTINE SULFATE
     Indication: Diffuse large B-cell lymphoma
     Dosage: (FIRST LINE WITH RITUXIMAB)CHOP
     Route: 065
     Dates: start: 20211201, end: 20220331
  6. PREDNISONE [Suspect]
     Active Substance: PREDNISONE
     Indication: Diffuse large B-cell lymphoma
     Dosage: (FIRST LINE WITH RITUXIMAB)CHOP
     Route: 065
     Dates: start: 20211201, end: 20220331
  7. CYCLOPHOSPHAMIDE [Suspect]
     Active Substance: CYCLOPHOSPHAMIDE
     Indication: Diffuse large B-cell lymphoma
     Dosage: (FIRST LINE WITH RITUXIMAB)CHOP
     Route: 065
     Dates: start: 20211201, end: 20220331
  8. POLATUZUMAB VEDOTIN [Suspect]
     Active Substance: POLATUZUMAB VEDOTIN
     Indication: Diffuse large B-cell lymphoma
     Dosage: (THIRD LINE WITH RITUXIMAB AND BENDAMUSTINE)
     Route: 065
     Dates: start: 20220912, end: 20221011
  9. RITUXIMAB [Suspect]
     Active Substance: RITUXIMAB
     Indication: Diffuse large B-cell lymphoma
     Dosage: (FIRST LINE WITH CHOP)
     Route: 065
     Dates: start: 20211201, end: 20220331
  10. RITUXIMAB [Suspect]
     Active Substance: RITUXIMAB
     Dosage: (SECOND LINE WITH GEMOX, FOUR CYCLES)
     Route: 065
     Dates: start: 20220714, end: 20220908
  11. RITUXIMAB [Suspect]
     Active Substance: RITUXIMAB
     Dosage: (THIRD LINE WITH POLATUZUMAB AND BENDAMUSTINE)
     Route: 065
     Dates: start: 20220912, end: 20221011

REACTIONS (2)
  - Malignant neoplasm progression [Unknown]
  - Off label use [Unknown]

NARRATIVE: CASE EVENT DATE: 20220912
